FAERS Safety Report 6026356-4 (Version None)
Quarter: 2008Q4

REPORT INFORMATION
  Report Type: 
  Country: None (occurrence: None)
  Receive Date: 20081222
  Receipt Date: 20081028
  Transmission Date: 20090506
  Serious: No
  Sender: FDA-Public Use
  Company Number: US-WYE-H06595508

PATIENT
  Age: 42 Year
  Sex: Male
  Weight: 99.88 kg

DRUGS (2)
  1. PRISTIQ [Suspect]
     Indication: OBSESSIVE-COMPULSIVE DISORDER
     Dosage: 50 MG 1X PER 1 DAY, ORAL
     Route: 048
     Dates: start: 20081020
  2. FLUVOXAMINE MALEATE [Concomitant]

REACTIONS (1)
  - HOT FLUSH [None]
